FAERS Safety Report 14156972 (Version 1)
Quarter: 2017Q4

REPORT INFORMATION
  Report Type: Spontaneous
  Country: US (occurrence: None)
  Receive Date: 20171102
  Receipt Date: 20171102
  Transmission Date: 20180321
  Serious: Yes (Death)
  Sender: FDA-Public Use
  Company Number: None

PATIENT
  Age: 54 Year
  Sex: Male

DRUGS (1)
  1. COSENTYX [Suspect]
     Active Substance: SECUKINUMAB
     Dosage: FREQUENCY - Q4WKS
     Route: 058
     Dates: start: 20171010, end: 20171030

REACTIONS (1)
  - Death [None]

NARRATIVE: CASE EVENT DATE: 20171030
